FAERS Safety Report 4504050-6 (Version None)
Quarter: 2004Q4

REPORT INFORMATION
  Report Type: 
  Country: None (occurrence: None)
  Receive Date: 20041115
  Receipt Date: 20041101
  Transmission Date: 20050328
  Serious: Yes (Other)
  Sender: FDA-Public Use
  Company Number: 2003-109256-NL

PATIENT
  Age: 28 Year
  Sex: Female
  Weight: 81.8 kg

DRUGS (2)
  1. NUVARING [Suspect]
     Dates: start: 20030709
  2. SYNTHROID [Concomitant]

REACTIONS (4)
  - ABORTION MISSED [None]
  - ABORTION SPONTANEOUS [None]
  - DRUG EXPOSURE DURING PREGNANCY [None]
  - PREGNANCY WITH CONTRACEPTIVE DEVICE [None]
